FAERS Safety Report 6081223-5 (Version None)
Quarter: 2009Q1

REPORT INFORMATION
  Report Type: 
  Country: None (occurrence: None)
  Receive Date: 20090213
  Receipt Date: 20090127
  Transmission Date: 20090719
  Serious: Yes (Hospitalization)
  Sender: FDA-Public Use
  Company Number: 8041439

PATIENT
  Age: 61 Year
  Sex: Female
  Weight: 113.6 kg

DRUGS (2)
  1. CIMZIA [Suspect]
     Indication: CROHN'S DISEASE
     Dosage: 400 MG SC
     Route: 058
     Dates: start: 20080716
  2. ENTOCORT EC [Suspect]
     Indication: CROHN'S DISEASE
     Dosage: 9 MG 3/D PO
     Route: 048
     Dates: start: 20081211

REACTIONS (10)
  - ABDOMINAL PAIN [None]
  - BLOOD POTASSIUM DECREASED [None]
  - DEHYDRATION [None]
  - DIARRHOEA [None]
  - INFLUENZA LIKE ILLNESS [None]
  - PALPITATIONS [None]
  - RASH MACULO-PAPULAR [None]
  - RESPIRATORY RATE INCREASED [None]
  - VOMITING PROJECTILE [None]
  - WHITE BLOOD CELL DISORDER [None]
